FAERS Safety Report 12170264 (Version 1)
Quarter: 2016Q1

REPORT INFORMATION
  Report Type: Spontaneous
  Country: US (occurrence: US)
  Receive Date: 20160311
  Receipt Date: 20160311
  Transmission Date: 20160526
  Serious: No
  Sender: FDA-Public Use
  Company Number: US-ASTRAZENECA-2016SE20113

PATIENT
  Sex: Male
  Weight: 97.5 kg

DRUGS (11)
  1. AMWAY MULTITAMIN [Concomitant]
     Route: 048
  2. SYMBICORT [Suspect]
     Active Substance: BUDESONIDE\FORMOTEROL FUMARATE DIHYDRATE
     Indication: ASTHMA
     Dosage: 160/4.5 MCG 2 PUFFS TWICE A DAY
     Route: 055
     Dates: start: 20160203, end: 20160215
  3. VITAMIN C [Concomitant]
     Active Substance: ASCORBIC ACID
  4. NASOCORT [Concomitant]
     Active Substance: BUDESONIDE
     Indication: SINUS CONGESTION
     Route: 045
  5. ASPIRIN. [Concomitant]
     Active Substance: ASPIRIN
     Indication: CARDIOVASCULAR EVENT PROPHYLAXIS
     Route: 048
  6. MELATONIN [Concomitant]
     Active Substance: MELATONIN
     Indication: SLEEP DISORDER
     Route: 048
  7. COQ 10 [Concomitant]
     Active Substance: UBIDECARENONE
     Route: 048
  8. PROBIOTIC [Concomitant]
     Active Substance: PROBIOTICS NOS
     Dosage: 14 BILLION 2 CAPS PER DAY
     Route: 048
  9. CALCIUM AND MAGNESIUM CITRATE WITH D3 [Concomitant]
     Dosage: 1 TABLE SPOON PER DAY
     Route: 048
  10. FISH OIL [Concomitant]
     Active Substance: FISH OIL
  11. PRILOSEC OTC [Concomitant]
     Active Substance: OMEPRAZOLE MAGNESIUM
     Indication: DYSPEPSIA
     Route: 048

REACTIONS (2)
  - Dyspnoea [Unknown]
  - Fatigue [Recovered/Resolved]
